FAERS Safety Report 15543439 (Version 7)
Quarter: 2019Q1

REPORT INFORMATION
  Report Type: Report from Study
  Country: US (occurrence: US)
  Receive Date: 20181023
  Receipt Date: 20190326
  Transmission Date: 20190417
  Serious: Yes (Hospitalization)
  Sender: FDA-Public Use
  Company Number: US-ACTELION-A-NJ2018-179067

PATIENT
  Sex: Female
  Weight: 114.29 kg

DRUGS (3)
  1. ADEMPAS [Suspect]
     Active Substance: RIOCIGUAT
     Dosage: 1.0 MG, UNK
     Route: 065
     Dates: start: 20181130, end: 20190310
  2. OPSUMIT [Suspect]
     Active Substance: MACITENTAN
     Indication: PULMONARY ARTERIAL HYPERTENSION
     Dosage: 10 MG, BID
     Route: 048
  3. ADEMPAS [Suspect]
     Active Substance: RIOCIGUAT
     Indication: PRODUCT USED FOR UNKNOWN INDICATION
     Dosage: 1.5 MG, UNK
     Route: 065
     Dates: end: 20181119

REACTIONS (11)
  - Hip arthroplasty [Unknown]
  - Food poisoning [Unknown]
  - Fatigue [Unknown]
  - Malaise [Unknown]
  - Dizziness [Recovered/Resolved]
  - Abdominal discomfort [Not Recovered/Not Resolved]
  - Oedema peripheral [Recovered/Resolved]
  - Headache [Unknown]
  - Asthenia [Unknown]
  - Anxiety [Unknown]
  - Therapy non-responder [Unknown]
